FAERS Safety Report 24988207 (Version 1)
Quarter: 2025Q1

REPORT INFORMATION
  Report Type: Report from Study
  Country: US (occurrence: US)
  Receive Date: 20250220
  Receipt Date: 20250220
  Transmission Date: 20250408
  Serious: Yes (Other)
  Sender: UCB
  Company Number: US-UCBSA-2025009174

PATIENT
  Age: 36 Year
  Sex: Male
  Weight: 56.7 kg

DRUGS (1)
  1. FINTEPLA [Suspect]
     Active Substance: FENFLURAMINE
     Indication: Product used for unknown indication
     Dates: start: 202402

REACTIONS (1)
  - Mitral valve thickening [Unknown]

NARRATIVE: CASE EVENT DATE: 20250213
